FAERS Safety Report 7353532-0 (Version None)
Quarter: 2011Q1

REPORT INFORMATION
  Report Type: 
  Country: None (occurrence: None)
  Receive Date: 20110315
  Receipt Date: 20110304
  Transmission Date: 20110831
  Serious: Yes (Hospitalization, Other)
  Sender: FDA-Public Use
  Company Number: JP-AMGEN-JPNCT2011005829

PATIENT
  Age: 84 Year
  Sex: Male
  Weight: 46 kg

DRUGS (5)
  1. IRINOTECAN HYDROCHLORIDE [Suspect]
     Indication: COLORECTAL CANCER
     Route: 041
     Dates: start: 20100825, end: 20101110
  2. CALCIUM LEVOFOLINATE [Suspect]
     Indication: COLORECTAL CANCER
     Route: 041
     Dates: start: 20100825, end: 20101110
  3. FLUOROURACIL [Suspect]
     Route: 041
     Dates: start: 20100825, end: 20101110
  4. PANITUMUMAB [Suspect]
     Indication: COLORECTAL CANCER METASTATIC
     Dosage: 6 MG/KG, Q2WK
     Route: 041
     Dates: start: 20100825
  5. FLUOROURACIL [Suspect]
     Indication: COLORECTAL CANCER
     Route: 040
     Dates: start: 20100825, end: 20101110

REACTIONS (5)
  - ARTHRITIS BACTERIAL [None]
  - ACNE [None]
  - DRY SKIN [None]
  - INTERSTITIAL LUNG DISEASE [None]
  - PARONYCHIA [None]
